FAERS Safety Report 14695969 (Version 1)
Quarter: 2018Q1

REPORT INFORMATION
  Report Type: Report from Study
  Country: None (occurrence: JP)
  Receive Date: 20180329
  Receipt Date: 20180329
  Transmission Date: 20180509
  Serious: Yes (Death)
  Sender: FDA-Public Use
  Company Number: JP-BAUSCH-BL-2018-009070

PATIENT
  Age: 68 Year
  Sex: Female

DRUGS (11)
  1. CHOREAZINE TABLETS 12.5 MG [Suspect]
     Active Substance: TETRABENAZINE
     Route: 048
     Dates: start: 20161115, end: 20161127
  2. URSO [Concomitant]
     Active Substance: URSODIOL
     Indication: HEPATITIS C
     Route: 048
     Dates: start: 20161115
  3. CHOREAZINE TABLETS 12.5 MG [Suspect]
     Active Substance: TETRABENAZINE
     Indication: HUNTINGTON^S DISEASE
     Route: 048
     Dates: start: 20170914
  4. RIVOTRIL [Concomitant]
     Active Substance: CLONAZEPAM
     Indication: HEAD INJURY
  5. CHOREAZINE TABLETS 12.5 MG [Suspect]
     Active Substance: TETRABENAZINE
     Route: 048
     Dates: start: 20161128, end: 20161211
  6. CHOREAZINE TABLETS 12.5 MG [Suspect]
     Active Substance: TETRABENAZINE
     Route: 048
     Dates: start: 20170517, end: 20170726
  7. RIVOTRIL [Concomitant]
     Active Substance: CLONAZEPAM
     Indication: BRAIN CONTUSION
     Route: 048
     Dates: start: 20161115
  8. CHOREAZINE TABLETS 12.5 MG [Suspect]
     Active Substance: TETRABENAZINE
     Route: 048
     Dates: start: 20161212, end: 20170516
  9. MUCOSOLVAN [Concomitant]
     Active Substance: AMBROXOL HYDROCHLORIDE
     Indication: BRAIN CONTUSION
     Route: 048
     Dates: start: 20161115
  10. PROHEPARUM [Concomitant]
     Active Substance: CHOLINE BITARTRATE\CYSTEINE\INOSITOL\MAMMAL LIVER
     Indication: HEPATITIS C
     Route: 048
     Dates: start: 20161115
  11. MUCOSOLVAN [Concomitant]
     Active Substance: AMBROXOL HYDROCHLORIDE
     Indication: HEAD INJURY

REACTIONS (4)
  - Brain contusion [Fatal]
  - Fall [Fatal]
  - Dizziness [Recovering/Resolving]
  - Fall [Recovering/Resolving]

NARRATIVE: CASE EVENT DATE: 20180102
